FAERS Safety Report 7901674-0 (Version None)
Quarter: 2011Q4

REPORT INFORMATION
  Report Type: 
  Country: None (occurrence: None)
  Receive Date: 20111108
  Receipt Date: 20111103
  Transmission Date: 20120403
  Serious: Yes (Other)
  Sender: FDA-Public Use
  Company Number: US-BRISTOL-MYERS SQUIBB COMPANY-16214306

PATIENT
  Age: 55 Year
  Sex: Female

DRUGS (3)
  1. ABILIFY [Suspect]
     Indication: DEPRESSION
     Dosage: DOSE INCREASED TO 5MG THEN 10MG
     Dates: end: 20110801
  2. PROZAC [Concomitant]
     Indication: DEPRESSION
     Dates: start: 20110101
  3. LUVOX [Concomitant]

REACTIONS (2)
  - TARDIVE DYSKINESIA [None]
  - GASTRIC BYPASS [None]
